FAERS Safety Report 7948689-4 (Version None)
Quarter: 2011Q4

REPORT INFORMATION
  Report Type: 
  Country: None (occurrence: None)
  Receive Date: 20111130
  Receipt Date: 20111130
  Transmission Date: 20120403
  Serious: Yes (Hospitalization)
  Sender: FDA-Public Use
  Company Number: None

PATIENT
  Sex: Female
  Weight: 79.3 kg

DRUGS (1)
  1. NEOCON [Suspect]
     Indication: MENORRHAGIA
     Route: 048

REACTIONS (3)
  - DEEP VEIN THROMBOSIS [None]
  - LIMB INJURY [None]
  - INTERNATIONAL NORMALISED RATIO DECREASED [None]
